FAERS Safety Report 15432375 (Version 1)
Quarter: 2018Q3

REPORT INFORMATION
  Report Type: Spontaneous
  Country: US (occurrence: US)
  Receive Date: 20180926
  Receipt Date: 20180926
  Transmission Date: 20181010
  Serious: Yes (Other)
  Sender: FDA-Public Use
  Company Number: US-GLAXOSMITHKLINE-US2018170997

PATIENT
  Age: 95 Year
  Sex: Female

DRUGS (1)
  1. BREO ELLIPTA [Suspect]
     Active Substance: FLUTICASONE FUROATE\VILANTEROL TRIFENATATE
     Indication: PRODUCT USED FOR UNKNOWN INDICATION
     Dosage: UNK
     Dates: start: 2013

REACTIONS (7)
  - Dizziness [Unknown]
  - Pelvic fracture [Unknown]
  - Sputum discoloured [Unknown]
  - Productive cough [Unknown]
  - Fall [Unknown]
  - Drug effect incomplete [Unknown]
  - Balance disorder [Unknown]

NARRATIVE: CASE EVENT DATE: 201805
